FAERS Safety Report 17683083 (Version 1)
Quarter: 2020Q2

REPORT INFORMATION
  Report Type: Report from Study
  Country: None (occurrence: CO)
  Receive Date: 20200420
  Receipt Date: 20200420
  Transmission Date: 20200714
  Serious: Yes (Death, Other)
  Sender: FDA-Public Use
  Company Number: CO-ABBVIE-20K-036-3369033-00

PATIENT
  Age: 77 Year
  Sex: Male
  Weight: 67 kg

DRUGS (3)
  1. IMBRUVICA [Suspect]
     Active Substance: IBRUTINIB
     Route: 048
     Dates: start: 20191127, end: 20200411
  2. IMBRUVICA [Suspect]
     Active Substance: IBRUTINIB
     Indication: MANTLE CELL LYMPHOMA
     Route: 048
     Dates: start: 20181212, end: 20190112
  3. IMBRUVICA [Suspect]
     Active Substance: IBRUTINIB
     Route: 048
     Dates: start: 20190621, end: 20191127

REACTIONS (2)
  - Lower respiratory tract infection bacterial [Fatal]
  - Decreased immune responsiveness [Unknown]

NARRATIVE: CASE EVENT DATE: 20200411
